FAERS Safety Report 7821399-X (Version None)
Quarter: 2011Q4

REPORT INFORMATION
  Report Type: 
  Country: None (occurrence: None)
  Receive Date: 20111018
  Receipt Date: 20110719
  Transmission Date: 20120403
  Serious: No
  Sender: FDA-Public Use
  Company Number: US-ASTRAZENECA-2011SE43025

PATIENT
  Age: 56 Year
  Sex: Male

DRUGS (5)
  1. SYMBICORT [Suspect]
     Dosage: 2 PUFFS TWO TIMES A DAY
     Route: 055
  2. SYMBICORT [Suspect]
     Dosage: 1 PUFF TWO TIMES A DAY
     Route: 055
  3. SYMBICORT [Suspect]
     Dosage: 2 PUFFS FOUR TIMES A DAY
     Route: 055
  4. COMBIVENT [Concomitant]
     Dosage: 2 PUFFS QID
  5. NEXIUM [Concomitant]

REACTIONS (3)
  - WHEEZING [None]
  - INAPPROPRIATE SCHEDULE OF DRUG ADMINISTRATION [None]
  - MULTIPLE ALLERGIES [None]
